FAERS Safety Report 6333865-7 (Version None)
Quarter: 2009Q3

REPORT INFORMATION
  Report Type: 
  Country: None (occurrence: None)
  Receive Date: 20090829
  Receipt Date: 20090629
  Transmission Date: 20100115
  Serious: No
  Sender: FDA-Public Use
  Company Number: US-ABBOTT-09P-163-0581163-00

PATIENT
  Sex: Male
  Weight: 113.5 kg

DRUGS (4)
  1. SIMCOR [Suspect]
     Indication: BLOOD CHOLESTEROL INCREASED
     Dosage: 500/20 MILLIGRAMS DAILY
     Dates: start: 20081101, end: 20090610
  2. SIMCOR [Suspect]
     Indication: BLOOD TRIGLYCERIDES INCREASED
  3. COUMADIN [Concomitant]
     Indication: CORONARY ARTERY BYPASS
     Dosage: UNKNOWN
     Dates: start: 20010101
  4. ASPIRIN [Concomitant]
     Indication: CORONARY ARTERY BYPASS
     Dates: start: 20080101

REACTIONS (6)
  - BACK PAIN [None]
  - DIARRHOEA [None]
  - GAIT DISTURBANCE [None]
  - HYPOAESTHESIA [None]
  - PARAESTHESIA [None]
  - WEIGHT BEARING DIFFICULTY [None]
